FAERS Safety Report 21290322 (Version 2)
Quarter: 2022Q3

REPORT INFORMATION
  Report Type: Spontaneous
  Country: MX (occurrence: MX)
  Receive Date: 20220902
  Receipt Date: 20220914
  Transmission Date: 20221027
  Serious: Yes (Hospitalization, Other)
  Sender: FDA-Public Use
  Company Number: MX-BAYER-2022A123879

PATIENT
  Age: 42 Year
  Sex: Female

DRUGS (1)
  1. XARELTO [Suspect]
     Active Substance: RIVAROXABAN
     Indication: Arterial insufficiency
     Dosage: 20 MG, QD
     Route: 048
     Dates: start: 20220823

REACTIONS (5)
  - Haematuria [Unknown]
  - Hysterectomy [Unknown]
  - Cardiovascular disorder [Unknown]
  - Aortic occlusion [Unknown]
  - Off label use [Unknown]

NARRATIVE: CASE EVENT DATE: 20220823
